FAERS Safety Report 17233402 (Version 1)
Quarter: 2020Q1

REPORT INFORMATION
  Report Type: Spontaneous
  Country: GB (occurrence: GB)
  Receive Date: 20200104
  Receipt Date: 20200104
  Transmission Date: 20200409
  Serious: Yes (Other)
  Sender: FDA-Public Use
  Company Number: GB-TEVA-2019-GB-1161517

PATIENT
  Age: 73 Year
  Sex: Female
  Weight: 52.16 kg

DRUGS (1)
  1. ATORVASTATIN [Suspect]
     Active Substance: ATORVASTATIN
     Indication: BLOOD CHOLESTEROL INCREASED
     Dosage: 40 MILLIGRAM
     Route: 048
     Dates: start: 20190904, end: 20191005

REACTIONS (2)
  - Abdominal pain upper [Not Recovered/Not Resolved]
  - Abdominal mass [Unknown]

NARRATIVE: CASE EVENT DATE: 20190907
